FAERS Safety Report 5758103-5 (Version None)
Quarter: 2008Q2

REPORT INFORMATION
  Report Type: 
  Country: None (occurrence: None)
  Receive Date: 20080530
  Receipt Date: 20080512
  Transmission Date: 20081010
  Serious: Yes (Hospitalization)
  Sender: FDA-Public Use
  Company Number: PHEH2008US04510

PATIENT
  Age: 69 Year
  Sex: Female
  Weight: 64.4 kg

DRUGS (6)
  1. RECLAST [Suspect]
     Indication: OSTEOPOROSIS
     Dosage: 5 MG, ONCE YEARLY, INFUSION
     Dates: start: 20080408
  2. CALCIUM W/VITAMIN D NOS (CALCIUM, VITAMIN D NOS) [Suspect]
  3. GLIPIZIDE [Concomitant]
  4. METOPROLOL - SLOW RELEASE (METOPROLOL TARTRATE) EXTENDED RELEASE TABLE [Concomitant]
  5. LOVASTATIN [Concomitant]
  6. LORAZEPAM [Concomitant]

REACTIONS (19)
  - ANOREXIA [None]
  - ASTHENIA [None]
  - BLOOD CALCIUM DECREASED [None]
  - BLOOD CREATINE PHOSPHOKINASE INCREASED [None]
  - BLOOD GLUCOSE INCREASED [None]
  - DIARRHOEA [None]
  - FATIGUE [None]
  - HYPERCALCAEMIA [None]
  - HYPERPARATHYROIDISM [None]
  - LACTOSE INTOLERANCE [None]
  - MYALGIA [None]
  - NAUSEA [None]
  - NEPHROLITHIASIS [None]
  - PRURITUS [None]
  - RENAL ATROPHY [None]
  - RENAL FAILURE ACUTE [None]
  - RENAL HYPERTROPHY [None]
  - URINE OUTPUT INCREASED [None]
  - VOMITING [None]
